FAERS Safety Report 24248410 (Version 2)
Quarter: 2024Q3

REPORT INFORMATION
  Report Type: Spontaneous
  Country: GR (occurrence: GR)
  Receive Date: 20240826
  Receipt Date: 20240918
  Transmission Date: 20241017
  Serious: Yes (Other)
  Sender: MYLAN
  Company Number: GR-MYLANLABS-2024M1077792

PATIENT
  Age: 55 Year
  Sex: Female

DRUGS (9)
  1. NEURONTIN [Interacting]
     Active Substance: GABAPENTIN
     Indication: Hypoaesthesia
     Dosage: 1 DOSAGE FORM, BID (1 CAP IN THE MORNING AND ONE CAP AT NIGHT) FOR AT LEAST 20 DAYS
     Route: 065
  2. NEURONTIN [Interacting]
     Active Substance: GABAPENTIN
     Dosage: 1 DOSAGE FORM, QD (1 CAPSULE EACH NIGHT)
     Route: 065
  3. XANAX [Suspect]
     Active Substance: ALPRAZOLAM
     Indication: Product used for unknown indication
     Dosage: UNK
     Route: 065
  4. FLUOXETINE HYDROCHLORIDE [Interacting]
     Active Substance: FLUOXETINE HYDROCHLORIDE
     Indication: Product used for unknown indication
     Dosage: UNK (THE FIRST 5 DAYS HALF LADOSE AND FROM THE 6TH DAY WHOLE)
     Route: 065
  5. FLUOXETINE HYDROCHLORIDE [Interacting]
     Active Substance: FLUOXETINE HYDROCHLORIDE
     Dosage: 1 DOSAGE FORM (THE FIRST 5 DAYS HALF LADOSE AND FROM THE 6TH DAY WHOLE)
     Route: 065
  6. FLUOXETINE HYDROCHLORIDE [Interacting]
     Active Substance: FLUOXETINE HYDROCHLORIDE
     Dosage: 1.5 DOSAGE FORM
     Route: 065
  7. FLUOXETINE HYDROCHLORIDE [Interacting]
     Active Substance: FLUOXETINE HYDROCHLORIDE
     Dosage: 1 DOSAGE FORM
     Route: 065
  8. COPAXONE [Concomitant]
     Active Substance: GLATIRAMER ACETATE
     Indication: Multiple sclerosis
     Dosage: UNK
     Route: 065
  9. Seropram [Concomitant]
     Dosage: UNK
     Route: 065

REACTIONS (11)
  - Suicidal ideation [Recovering/Resolving]
  - Crying [Recovering/Resolving]
  - Feeling abnormal [Recovering/Resolving]
  - Phobia [Recovering/Resolving]
  - Restlessness [Recovering/Resolving]
  - Somnolence [Recovering/Resolving]
  - Dizziness [Recovered/Resolved]
  - Drug interaction [Unknown]
  - Drug ineffective [Unknown]
  - Off label use [Unknown]
  - Anxiety [Unknown]
